FAERS Safety Report 7922205-5 (Version None)
Quarter: 2011Q4

REPORT INFORMATION
  Report Type: 
  Country: None (occurrence: None)
  Receive Date: 20111117
  Receipt Date: 20110127
  Transmission Date: 20120403
  Serious: Yes (Other)
  Sender: FDA-Public Use
  Company Number: US-AMGEN-USASP2011002012

PATIENT
  Age: 56 Year
  Sex: Female

DRUGS (3)
  1. REMICADE [Concomitant]
  2. ENBREL [Suspect]
     Indication: RHEUMATOID ARTHRITIS
     Dosage: 25 MG, 2 TIMES/WK
     Dates: start: 20081019
  3. METHOTREXATE [Concomitant]
     Dates: start: 20040101

REACTIONS (6)
  - CHONDROPATHY [None]
  - STAPHYLOCOCCAL INFECTION [None]
  - PAIN [None]
  - OSTEOPENIA [None]
  - SINUSITIS [None]
  - DRY EYE [None]
